FAERS Safety Report 8511484-1 (Version None)
Quarter: 2012Q3

REPORT INFORMATION
  Report Type: 
  Country: None (occurrence: None)
  Receive Date: 20120716
  Receipt Date: 20120702
  Transmission Date: 20120928
  Serious: No
  Sender: FDA-Public Use
  Company Number: US-ASTRAZENECA-2012SE44848

PATIENT
  Age: 73 Year
  Sex: Female
  Weight: 56.2 kg

DRUGS (2)
  1. LEVOTHYROXINE SODIUM [Concomitant]
     Indication: HYPOTHYROIDISM
  2. PULMICORT FLEXHALER [Suspect]
     Indication: ASTHMA
     Dosage: 2 PUFFS TWO TIMES A DAY
     Route: 055
     Dates: start: 20120404

REACTIONS (3)
  - MUSCLE SPASMS [None]
  - SLEEP DISORDER DUE TO GENERAL MEDICAL CONDITION, INSOMNIA TYPE [None]
  - PAIN IN EXTREMITY [None]
